FAERS Safety Report 22379902 (Version 1)
Quarter: 2023Q2

REPORT INFORMATION
  Report Type: Report from Study
  Country: CA (occurrence: CA)
  Receive Date: 20230529
  Receipt Date: 20230529
  Transmission Date: 20230722
  Serious: Yes (Hospitalization, Other)
  Sender: FDA-Public Use
  Company Number: CA-HLS-202301082

PATIENT
  Age: 62 Year
  Sex: Male
  Weight: 70 kg

DRUGS (9)
  1. CLOZARIL [Suspect]
     Active Substance: CLOZAPINE
     Indication: Schizophrenia
     Dosage: 575 MG  ONCE A DAY , PRIOR TO 2013
     Route: 048
  2. ZOLOFT [Concomitant]
     Active Substance: SERTRALINE HYDROCHLORIDE
     Indication: Obsessive-compulsive symptom
     Route: 048
  3. Atropine drops [Concomitant]
     Indication: Schizophrenia
     Dosage: 2-3 DROPS THREE TIMES DAILY AS NEEDED
     Route: 060
  4. COLACE [Concomitant]
     Active Substance: DOCUSATE SODIUM
     Indication: Constipation
     Dosage: 200MG EVERY BEDTIME
     Route: 048
  5. BISOPROLOL [Concomitant]
     Active Substance: BISOPROLOL
     Indication: Tachycardia
     Dosage: 5 MG ONCE DAILY
     Route: 048
  6. VITAMIN D [Concomitant]
     Active Substance: VITAMIN D NOS
     Indication: Vitamin D decreased
     Dosage: 1000 UNITS ONCE A DAY
     Route: 048
  7. ATIVAN [Concomitant]
     Active Substance: LORAZEPAM
     Indication: Anxiety
     Dosage: 0.5MG EVERY MORNING AND 1 MG EVERY SUPPER
     Route: 048
  8. BENZTROPINE [Concomitant]
     Active Substance: BENZTROPINE
     Indication: Extrapyramidal disorder
     Dosage: 1 MG TWICE DAILY
     Route: 048
  9. Sennokot [Concomitant]
     Indication: Constipation
     Dosage: 1 TABLET AT BEDTIME AS NEEDED
     Route: 048

REACTIONS (3)
  - Neutrophil count increased [Unknown]
  - Cholecystitis acute [Recovered/Resolved]
  - White blood cell count increased [Unknown]

NARRATIVE: CASE EVENT DATE: 20230512
